FAERS Safety Report 17733981 (Version 1)
Quarter: 2020Q2

REPORT INFORMATION
  Report Type: Spontaneous
  Country: US (occurrence: US)
  Receive Date: 20200430
  Receipt Date: 20200430
  Transmission Date: 20200714
  Serious: Yes (Hospitalization)
  Sender: FDA-Public Use
  Company Number: None

PATIENT
  Sex: Male
  Weight: 93.6 kg

DRUGS (6)
  1. VINCRISTINE SULFATE. [Suspect]
     Active Substance: VINCRISTINE SULFATE
     Dates: end: 20200330
  2. DAUNORUBICIN [Suspect]
     Active Substance: DAUNORUBICIN
     Dates: end: 20200330
  3. CYTARABINE. [Suspect]
     Active Substance: CYTARABINE
     Dates: end: 20200309
  4. PREDNISOLONE. [Suspect]
     Active Substance: PREDNISOLONE
     Dates: end: 20200404
  5. METHOTREXATE. [Suspect]
     Active Substance: METHOTREXATE
     Dates: end: 20200316
  6. ONCASPAR [Suspect]
     Active Substance: PEGASPARGASE
     Dates: end: 20200312

REACTIONS (8)
  - Diarrhoea [None]
  - Staphylococcus test positive [None]
  - Neutropenia [None]
  - Haematochezia [None]
  - Pain in extremity [None]
  - Asthenia [None]
  - Pyrexia [None]
  - Blood culture positive [None]

NARRATIVE: CASE EVENT DATE: 20200404
